FAERS Safety Report 22256788 (Version 1)
Quarter: 2023Q2

REPORT INFORMATION
  Report Type: Spontaneous
  Country: None (occurrence: GB)
  Receive Date: 20230426
  Receipt Date: 20230426
  Transmission Date: 20230721
  Serious: Yes (Other)
  Sender: FDA-Public Use
  Company Number: GB-Breckenridge Pharmaceutical, Inc.-2140817

PATIENT
  Age: 63 Year
  Sex: Female

DRUGS (1)
  1. DULOXETINE [Suspect]
     Active Substance: DULOXETINE
     Route: 048

REACTIONS (5)
  - Progressive multiple sclerosis [Unknown]
  - High density lipoprotein decreased [Unknown]
  - Red cell distribution width increased [Unknown]
  - Myocardial infarction [Unknown]
  - Blood triglycerides increased [Unknown]
